FAERS Safety Report 19432674 (Version 1)
Quarter: 2021Q2

REPORT INFORMATION
  Report Type: Spontaneous
  Country: TR (occurrence: TR)
  Receive Date: 20210617
  Receipt Date: 20210617
  Transmission Date: 20210717
  Serious: Yes (Life-Threatening, Other)
  Sender: FDA-Public Use
  Company Number: NVSC2021TR136301

PATIENT
  Age: 32 Year
  Sex: Female
  Weight: 53 kg

DRUGS (1)
  1. FINGYA [Suspect]
     Active Substance: FINGOLIMOD
     Indication: RELAPSING-REMITTING MULTIPLE SCLEROSIS
     Dosage: 1 DF, QD
     Route: 048
     Dates: start: 20210531, end: 20210604

REACTIONS (4)
  - Cardiac arrest [Recovering/Resolving]
  - Arrhythmia [Recovering/Resolving]
  - Pulmonary oedema [Unknown]
  - Hypoxia [Unknown]

NARRATIVE: CASE EVENT DATE: 20210604
